FAERS Safety Report 8532165-4 (Version None)
Quarter: 2012Q3

REPORT INFORMATION
  Report Type: 
  Country: None (occurrence: None)
  Receive Date: 20120723
  Receipt Date: 20120717
  Transmission Date: 20120928
  Serious: Yes (Hospitalization)
  Sender: FDA-Public Use
  Company Number: JP-GLAXOSMITHKLINE-B0789071A

PATIENT
  Sex: Male

DRUGS (14)
  1. FUROSEMIDE [Concomitant]
     Route: 048
  2. URINORM [Concomitant]
     Route: 048
  3. CALBLOCK [Concomitant]
     Route: 048
  4. CARVEDILOL [Concomitant]
     Route: 048
  5. VITAMIN B12 [Concomitant]
     Route: 065
  6. PLAVIX [Concomitant]
     Route: 048
  7. CRESTOR [Concomitant]
     Route: 048
  8. AZUNOL [Concomitant]
     Route: 062
  9. ASPIRIN [Suspect]
     Indication: PRODUCT USED FOR UNKNOWN INDICATION
     Route: 048
  10. FAMOTIDINE [Concomitant]
     Route: 065
  11. VALTREX [Suspect]
     Indication: HERPES ZOSTER
     Dosage: 3000MG PER DAY
     Route: 048
     Dates: start: 20120309, end: 20120312
  12. ENALAPRIL MALEATE [Concomitant]
     Route: 048
  13. ALLOPURINOL [Concomitant]
     Route: 048
  14. ANPLAG [Concomitant]
     Route: 048

REACTIONS (6)
  - RENAL FAILURE ACUTE [None]
  - ENCEPHALOPATHY [None]
  - RESTLESSNESS [None]
  - BLOOD CREATININE INCREASED [None]
  - DEHYDRATION [None]
  - HALLUCINATION [None]
